FAERS Safety Report 8747357 (Version 2)
Quarter: 2013Q2

REPORT INFORMATION
  Report Type: Report from Study
  Country: DE (occurrence: DE)
  Receive Date: 20120827
  Receipt Date: 20130425
  Transmission Date: 20140414
  Serious: Yes (Hospitalization)
  Sender: FDA-Public Use
  Company Number: DE-BRISTOL-MYERS SQUIBB COMPANY-16888695

PATIENT
  Age: 61 Year
  Sex: Male
  Weight: 66 kg

DRUGS (4)
  1. ERBITUX SOLN FOR INF [Suspect]
     Indication: COLORECTAL CANCER METASTATIC
     Dosage: 400 MG/M2 ON 27SEP11?250 MG/M2 1 IN 1WK 4OCT-13DEC2011(70D)?250 MG/M2 1 IN 1WK 6MAR-17APR2012(41D)
     Route: 042
     Dates: start: 20110927
  2. 5-FLUOROURACIL [Concomitant]
     Indication: COLORECTAL CANCER METASTATIC
     Route: 042
     Dates: start: 20110927, end: 20120516
  3. OXALIPLATIN [Concomitant]
     Indication: COLORECTAL CANCER METASTATIC
     Route: 042
     Dates: start: 20110927, end: 20120516
  4. FOLINATE [Concomitant]
     Indication: COLORECTAL CANCER METASTATIC
     Route: 042
     Dates: start: 20110927, end: 20120516

REACTIONS (1)
  - Ileus [Recovered/Resolved]
